FAERS Safety Report 16771445 (Version 1)
Quarter: 2019Q3

REPORT INFORMATION
  Report Type: Spontaneous
  Country: US (occurrence: US)
  Receive Date: 20190904
  Receipt Date: 20190904
  Transmission Date: 20191005
  Serious: No
  Sender: FDA-Public Use
  Company Number: US-ASTRAZENECA-2019SF13151

PATIENT
  Sex: Female

DRUGS (1)
  1. SYMBICORT [Suspect]
     Active Substance: BUDESONIDE\FORMOTEROL FUMARATE DIHYDRATE
     Dosage: 160/4.5 MCG TWO PUFFS TWICE PER DAY
     Route: 055

REACTIONS (4)
  - Feeling abnormal [Unknown]
  - Intentional product misuse [Recovered/Resolved]
  - Product dose omission [Recovered/Resolved]
  - Device malfunction [Unknown]
